FAERS Safety Report 22535646 (Version 1)
Quarter: 2023Q2

REPORT INFORMATION
  Report Type: Report from Study
  Country: US (occurrence: US)
  Receive Date: 20230608
  Receipt Date: 20230608
  Transmission Date: 20230721
  Serious: No
  Sender: FDA-Public Use
  Company Number: US-002147023-NVSC2023US128000

PATIENT
  Sex: Female

DRUGS (4)
  1. COSENTYX [Suspect]
     Active Substance: SECUKINUMAB
     Indication: Psoriasis
     Dosage: UNK
     Route: 065
  2. OMEPRAZOLE [Suspect]
     Active Substance: OMEPRAZOLE
     Indication: Psoriasis
     Dosage: UNK
     Route: 065
  3. DIFLORASONE DIACETATE [Suspect]
     Active Substance: DIFLORASONE DIACETATE
     Indication: Psoriasis
     Dosage: UNK
     Route: 065
  4. SUCRALFATE [Suspect]
     Active Substance: SUCRALFATE
     Route: 065

REACTIONS (5)
  - Arthralgia [Unknown]
  - Psoriasis [Unknown]
  - Rash erythematous [Unknown]
  - Skin plaque [Unknown]
  - Product use in unapproved indication [Unknown]
